FAERS Safety Report 16305648 (Version 1)
Quarter: 2019Q2

REPORT INFORMATION
  Report Type: Spontaneous
  Country: NL (occurrence: NL)
  Receive Date: 20190513
  Receipt Date: 20190513
  Transmission Date: 20190711
  Serious: Yes (Disabling)
  Sender: FDA-Public Use
  Company Number: NL-EXELIXIS-CABO-19020863

PATIENT
  Age: 63 Year
  Sex: Female
  Weight: 54 kg

DRUGS (6)
  1. CETOMACROGOL [Concomitant]
     Active Substance: COSMETICS
     Dosage: 2 X PER DAG DOSERING ONBEKEND AANBRENGEN
     Dates: start: 20181112
  2. CABOMETYX [Suspect]
     Active Substance: CABOZANTINIB S-MALATE
     Indication: RENAL CELL CARCINOMA
     Dosage: 40 MG, QD
     Dates: start: 20181113
  3. OMEPRAZOL [Concomitant]
     Active Substance: OMEPRAZOLE
     Dosage: 20 MG, QD
     Dates: start: 20181112
  4. TOBRADEX [Concomitant]
     Active Substance: DEXAMETHASONE\TOBRAMYCIN
     Dosage: GEBRUIK VOLGENS AANWIJZINGEN HUISARTS
  5. CABOMETYX [Suspect]
     Active Substance: CABOZANTINIB S-MALATE
     Dosage: UNK
  6. NEVANAC [Concomitant]
     Active Substance: NEPAFENAC
     Dosage: 1 GTT, QD
     Dates: start: 20190402

REACTIONS (2)
  - Hyperkeratosis [Recovering/Resolving]
  - Blister [Recovering/Resolving]

NARRATIVE: CASE EVENT DATE: 20190325
